FAERS Safety Report 23963327 (Version 1)
Quarter: 2024Q2

REPORT INFORMATION
  Report Type: Spontaneous
  Country: US (occurrence: None)
  Receive Date: 20240610
  Receipt Date: 20240610
  Transmission Date: 20240715
  Serious: Yes (Other)
  Sender: FDA-Public Use
  Company Number: None

PATIENT
  Age: 58 Year
  Sex: Male
  Weight: 101.1 kg

DRUGS (2)
  1. TIVICAY [Suspect]
     Active Substance: DOLUTEGRAVIR SODIUM
     Indication: HIV infection
     Dosage: 50 MG DAILY ORAL
     Route: 048
     Dates: start: 20240520, end: 20240605
  2. DESCOVY [Suspect]
     Active Substance: EMTRICITABINE\TENOFOVIR ALAFENAMIDE FUMARATE
     Dosage: 1 MG DAILY ORAL?
     Route: 048
     Dates: start: 20240520, end: 20240605

REACTIONS (5)
  - Brain fog [None]
  - Dizziness [None]
  - Fatigue [None]
  - Chills [None]
  - Eye pruritus [None]

NARRATIVE: CASE EVENT DATE: 20240610
